FAERS Safety Report 6765788-3 (Version None)
Quarter: 2010Q2

REPORT INFORMATION
  Report Type: 
  Country: None (occurrence: None)
  Receive Date: 20100611
  Receipt Date: 20100528
  Transmission Date: 20101027
  Serious: No
  Sender: FDA-Public Use
  Company Number: US-ELI_LILLY_AND_COMPANY-US201005001909

PATIENT
  Age: 82 Year
  Sex: Male

DRUGS (10)
  1. FORTEO [Suspect]
     Indication: OSTEOPOROSIS
     Dosage: 20 MG, DAILY (1/D)
     Dates: start: 20090701
  2. PREDNISONE [Concomitant]
     Indication: VASCULITIS
  3. NAMENDA [Concomitant]
  4. ARICEPT [Concomitant]
  5. SYNTHROID [Concomitant]
  6. LIPITOR [Concomitant]
  7. LOPRESSOR [Concomitant]
  8. HYDROCHLOROTHIAZIDE [Concomitant]
  9. COSOPT [Concomitant]
  10. ALPHAGAN [Concomitant]

REACTIONS (1)
  - GENERAL PHYSICAL HEALTH DETERIORATION [None]
